FAERS Safety Report 16562047 (Version 1)
Quarter: 2019Q3

REPORT INFORMATION
  Report Type: Spontaneous
  Country: US (occurrence: US)
  Receive Date: 20190711
  Receipt Date: 20190711
  Transmission Date: 20191004
  Serious: No
  Sender: FDA-Public Use
  Company Number: US-TEVA-2019-US-1072364

PATIENT
  Age: 30 Year
  Sex: Male
  Weight: 82 kg

DRUGS (9)
  1. CLONAZEPAM. [Concomitant]
     Active Substance: CLONAZEPAM
     Indication: AGITATION
  2. TRAZODONE [Concomitant]
     Active Substance: TRAZODONE HYDROCHLORIDE
     Indication: INSOMNIA
  3. CLOZAPINE TEVA [Suspect]
     Active Substance: CLOZAPINE
     Route: 065
  4. OLANZAPINE. [Concomitant]
     Active Substance: OLANZAPINE
     Indication: SCHIZOAFFECTIVE DISORDER
  5. PROPRANOLOL [Concomitant]
     Active Substance: PROPRANOLOL HYDROCHLORIDE
  6. CLOZAPINE TEVA [Suspect]
     Active Substance: CLOZAPINE
     Dosage: CLOZAPINE 100MG (TEVA) AND 25MG: 150 MG IN THE MORNING AND AFTERNOON (2-3PM), AND 400MG AT BEDTIME.
     Route: 065
     Dates: start: 201904
  7. NICOTINE GUM [Concomitant]
     Active Substance: NICOTINE
     Indication: SMOKING CESSATION THERAPY
  8. OLANZAPINE. [Concomitant]
     Active Substance: OLANZAPINE
     Indication: AGITATION
  9. BENZOCAINE. [Concomitant]
     Active Substance: BENZOCAINE

REACTIONS (8)
  - Paranoia [Not Recovered/Not Resolved]
  - Blood alkaline phosphatase increased [Not Recovered/Not Resolved]
  - Haemoglobin decreased [Not Recovered/Not Resolved]
  - Haematocrit decreased [Not Recovered/Not Resolved]
  - Constipation [Not Recovered/Not Resolved]
  - Pain [Not Recovered/Not Resolved]
  - Iron deficiency [Not Recovered/Not Resolved]
  - Urinary tract infection [Not Recovered/Not Resolved]

NARRATIVE: CASE EVENT DATE: 20190701
